FAERS Safety Report 16725591 (Version 4)
Quarter: 2022Q2

REPORT INFORMATION
  Report Type: Spontaneous
  Country: HR (occurrence: HR)
  Receive Date: 20190821
  Receipt Date: 20220502
  Transmission Date: 20220721
  Serious: Yes (Other)
  Sender: FDA-Public Use
  Company Number: PHHY2019HR193178

PATIENT
  Age: 57 Year
  Sex: Male

DRUGS (3)
  1. MOXONIDINE [Suspect]
     Active Substance: MOXONIDINE
     Indication: Product used for unknown indication
     Dosage: UNK
     Route: 065
  2. AMLODIPINE [Suspect]
     Active Substance: AMLODIPINE BESYLATE
     Indication: Product used for unknown indication
     Dosage: UNK
     Route: 065
  3. PERINDOPRIL [Suspect]
     Active Substance: PERINDOPRIL
     Indication: Product used for unknown indication
     Dosage: UNK
     Route: 065

REACTIONS (8)
  - Linear IgA disease [Recovered/Resolved]
  - Pruritus [Recovered/Resolved]
  - Dermatitis bullous [Recovered/Resolved]
  - Skin lesion [Recovered/Resolved]
  - Skin erosion [Recovered/Resolved]
  - Blister [Recovered/Resolved]
  - Conjunctivitis [Recovered/Resolved]
  - Drug ineffective for unapproved indication [Unknown]
